FAERS Safety Report 5153199-6 (Version None)
Quarter: 2006Q4

REPORT INFORMATION
  Report Type: 
  Country: None (occurrence: None)
  Receive Date: 20061117
  Receipt Date: 20011015
  Transmission Date: 20070319
  Serious: Yes (Hospitalization)
  Sender: FDA-Public Use
  Company Number: US-ROCHE-269846

PATIENT
  Age: 49 Year
  Sex: Female
  Weight: 73.5 kg

DRUGS (4)
  1. DACLIZUMAB [Suspect]
     Indication: PSORIASIS
     Dosage: DRUG TAKEN ON DAYS 0,14,28,42 AND 56.
     Route: 042
     Dates: start: 20010328, end: 20010620
  2. UNIVASC [Concomitant]
  3. HYDROCHLOROTHIAZIDE [Concomitant]
  4. EFFEXOR [Concomitant]

REACTIONS (1)
  - PSORIASIS [None]
